FAERS Safety Report 8258487-2 (Version None)
Quarter: 2012Q2

REPORT INFORMATION
  Report Type: 
  Country: None (occurrence: None)
  Receive Date: 20120404
  Receipt Date: 20120329
  Transmission Date: 20120825
  Serious: Yes (Disabling)
  Sender: FDA-Public Use
  Company Number: NO-GE HEALTHCARE MEDICAL DIAGNOSTICS-OSCN-NO-0603S-0069

PATIENT
  Sex: Female
  Weight: 40 kg

DRUGS (1)
  1. OMNISCAN [Suspect]
     Indication: ISCHAEMIA
     Route: 042
     Dates: start: 20051118, end: 20051118

REACTIONS (10)
  - EYELID PTOSIS [None]
  - SERUM FERRITIN DECREASED [None]
  - DIZZINESS [None]
  - PAIN IN EXTREMITY [None]
  - PARAESTHESIA [None]
  - VISUAL IMPAIRMENT [None]
  - HAEMOGLOBIN DECREASED [None]
  - HEADACHE [None]
  - EYE PAIN [None]
  - SKIN ATROPHY [None]
